FAERS Safety Report 11351715 (Version 1)
Quarter: 2015Q3

REPORT INFORMATION
  Report Type: Spontaneous
  Country: US (occurrence: US)
  Receive Date: 20150807
  Receipt Date: 20150807
  Transmission Date: 20151125
  Serious: No
  Sender: FDA-Public Use
  Company Number: US-JNJFOC-20150215235

PATIENT
  Age: 66 Year
  Sex: Female

DRUGS (3)
  1. WOMENS ROGAINE [Suspect]
     Active Substance: MINOXIDIL
     Route: 061
  2. WOMENS ROGAINE [Suspect]
     Active Substance: MINOXIDIL
     Indication: ALOPECIA
     Dosage: RECOMMENDED AMOUNT
     Route: 061
  3. ALL OTHER THERAPEUTIC PRODUCTS [Concomitant]
     Active Substance: UNSPECIFIED INGREDIENT
     Route: 065

REACTIONS (6)
  - Therapeutic response unexpected [Unknown]
  - Inappropriate schedule of drug administration [Unknown]
  - Hair colour changes [Recovered/Resolved]
  - Product use issue [Unknown]
  - Hair texture abnormal [Recovered/Resolved]
  - Dry skin [Unknown]
